FAERS Safety Report 21526025 (Version 1)
Quarter: 2022Q4

REPORT INFORMATION
  Report Type: Spontaneous
  Country: PT (occurrence: PT)
  Receive Date: 20221031
  Receipt Date: 20221031
  Transmission Date: 20230112
  Serious: Yes (Hospitalization, Other)
  Sender: FDA-Public Use
  Company Number: PT-SANOFI-01231698

PATIENT
  Age: 19 Year
  Sex: Female

DRUGS (2)
  1. RISPERIDONE [Suspect]
     Active Substance: RISPERIDONE
     Indication: Depression
     Dosage: UNK ONCE A DAY (1-2 TABLETS, QD)
     Route: 065
  2. CERDELGA [Interacting]
     Active Substance: ELIGLUSTAT
     Indication: Gaucher^s disease type I
     Dosage: 84 MILLIGRAM, TWO TIMES A DAY (84 MG, BID)
     Route: 048
     Dates: start: 20220203

REACTIONS (2)
  - Supraventricular tachycardia [Recovered/Resolved]
  - Drug interaction [Unknown]

NARRATIVE: CASE EVENT DATE: 20220811
